FAERS Safety Report 9809255 (Version 1)
Quarter: 2014Q1

REPORT INFORMATION
  Report Type: Spontaneous
  Country: US (occurrence: US)
  Receive Date: 20140110
  Receipt Date: 20140110
  Transmission Date: 20141002
  Serious: No
  Sender: FDA-Public Use
  Company Number: US-GE HEALTHCARE MEDICAL DIAGNOSTICS-OMPQ-PR-1401S-0005

PATIENT
  Age: 71 Year
  Sex: Female

DRUGS (4)
  1. OMNIPAQUE [Suspect]
     Indication: BACK PAIN
     Dosage: DOSE NOT REPORTED
     Route: 065
     Dates: start: 20131226, end: 20131226
  2. OMNIPAQUE [Suspect]
     Indication: DIAGNOSTIC PROCEDURE
  3. GABAPENTIN [Concomitant]
     Indication: PAIN IN EXTREMITY
  4. VALIUM [Concomitant]
     Indication: SLEEP DISORDER

REACTIONS (2)
  - Eye pain [Not Recovered/Not Resolved]
  - Headache [Not Recovered/Not Resolved]
